FAERS Safety Report 13819364 (Version 2)
Quarter: 2018Q1

REPORT INFORMATION
  Report Type: Report from Study
  Country: US (occurrence: US)
  Receive Date: 20170731
  Receipt Date: 20180201
  Transmission Date: 20180508
  Serious: Yes (Hospitalization)
  Sender: FDA-Public Use
  Company Number: US-IPSEN-CABO-17008745

PATIENT
  Age: 58 Year
  Sex: Male

DRUGS (11)
  1. DEXAMETHASONE. [Concomitant]
     Active Substance: DEXAMETHASONE
  2. OXYCODONE [Concomitant]
     Active Substance: OXYCODONE
  3. LIDODERM [Concomitant]
     Active Substance: LIDOCAINE
  4. LACTULOSE. [Concomitant]
     Active Substance: LACTULOSE
  5. LIPITOR [Concomitant]
     Active Substance: ATORVASTATIN CALCIUM
  6. PROTONIX [Concomitant]
     Active Substance: PANTOPRAZOLE SODIUM
  7. FLUCONAZOLE. [Concomitant]
     Active Substance: FLUCONAZOLE
  8. LANTUS [Concomitant]
     Active Substance: INSULIN GLARGINE
  9. CABOMETYX [Suspect]
     Active Substance: CABOZANTINIB S-MALATE
     Indication: RENAL CANCER
     Dosage: 60 MG, QD
     Route: 048
     Dates: start: 20170105
  10. ZOFRAN [Concomitant]
     Active Substance: ONDANSETRON HYDROCHLORIDE
  11. FENTANYL. [Concomitant]
     Active Substance: FENTANYL

REACTIONS (8)
  - Dry skin [Unknown]
  - Stomatitis [Unknown]
  - Thrombosis [Unknown]
  - Decreased appetite [Unknown]
  - Skin atrophy [Unknown]
  - Mood swings [Unknown]
  - Dry mouth [Unknown]
  - Depression [Unknown]

NARRATIVE: CASE EVENT DATE: 20170323
